FAERS Safety Report 9517881 (Version 1)
Quarter: 2013Q3

REPORT INFORMATION
  Report Type: Spontaneous
  Country: US (occurrence: None)
  Receive Date: 20130910
  Receipt Date: 20130910
  Transmission Date: 20140515
  Serious: No
  Sender: FDA-Public Use
  Company Number: None

PATIENT
  Age: 70 Year
  Sex: Male
  Weight: 99.79 kg

DRUGS (7)
  1. LEVAQUIN [Suspect]
     Indication: RESPIRATORY DISORDER
  2. AMOXICILLIN-CLAVULANIC ACID [Suspect]
  3. SYMBICORT [Concomitant]
  4. HYDROCHLOROTHAZIDE 25MG [Concomitant]
  5. OMEPRAZOLE 20MG TWICE DAILY [Concomitant]
  6. AMLODIPINE 10MG [Concomitant]
  7. LOSARTAN [Concomitant]

REACTIONS (3)
  - Abasia [None]
  - Tendon disorder [None]
  - Eating disorder [None]
